FAERS Safety Report 6411769-9 (Version None)
Quarter: 2009Q4

REPORT INFORMATION
  Report Type: 
  Country: None (occurrence: None)
  Receive Date: 20091023
  Receipt Date: 20090515
  Transmission Date: 20100525
  Serious: Yes (Death, Hospitalization)
  Sender: FDA-Public Use
  Company Number: PHEH2009US11900

PATIENT
  Age: 68 Year
  Sex: Male

DRUGS (2)
  1. EXJADE [Suspect]
     Indication: HAEMOSIDEROSIS
     Dosage: 1750 MG / DAILY
     Dates: start: 20061201, end: 20070507
  2. EXJADE [Suspect]
     Dosage: 2250MG / DAILY
     Dates: start: 20070507, end: 20070514

REACTIONS (5)
  - DEATH [None]
  - GROIN INFECTION [None]
  - MUSCULOSKELETAL PAIN [None]
  - MYELODYSPLASTIC SYNDROME [None]
  - SINUS TACHYCARDIA [None]
